FAERS Safety Report 4690864-9 (Version None)
Quarter: 2005Q2

REPORT INFORMATION
  Report Type: 
  Country: None (occurrence: None)
  Receive Date: 20050614
  Receipt Date: 20050614
  Transmission Date: 20051028
  Serious: Yes (Hospitalization)
  Sender: FDA-Public Use
  Company Number: None

PATIENT
  Sex: Male
  Weight: 87.1 kg

DRUGS (5)
  1. SEROQUEL [Suspect]
     Indication: SCHIZOPHRENIA
     Dosage: 700MG TOTAL DAILY DOSE
  2. RISPERDAL [Suspect]
     Dosage: 6 MG TOTAL DAILY DOSE
  3. ZOLOFT [Concomitant]
  4. HYDROCHLOROTHIAZIDE [Concomitant]
  5. CLONIDINE [Concomitant]

REACTIONS (3)
  - CHEST PAIN [None]
  - EXTRAPYRAMIDAL DISORDER [None]
  - RENAL FAILURE [None]
